FAERS Safety Report 24994593 (Version 1)
Quarter: 2025Q1

REPORT INFORMATION
  Report Type: Spontaneous
  Country: US (occurrence: None)
  Receive Date: 20250220
  Receipt Date: 20250220
  Transmission Date: 20250409
  Serious: Yes (Hospitalization)
  Sender: FDA-CTU
  Company Number: None

PATIENT
  Age: 52 Year
  Sex: Female
  Weight: 63 kg

DRUGS (1)
  1. LAMOTRIGINE [Suspect]
     Active Substance: LAMOTRIGINE
     Indication: Affective disorder
     Dosage: FREQUENCY : AT BEDTIME;?
     Route: 048

REACTIONS (9)
  - Musculoskeletal stiffness [None]
  - Headache [None]
  - Rash [None]
  - Lip swelling [None]
  - Fatigue [None]
  - Dry eye [None]
  - Lip dry [None]
  - Hyperhidrosis [None]
  - Anaphylactic reaction [None]

NARRATIVE: CASE EVENT DATE: 20241022
